FAERS Safety Report 5369658-7 (Version None)
Quarter: 2007Q2

REPORT INFORMATION
  Report Type: 
  Country: None (occurrence: None)
  Receive Date: 20070625
  Receipt Date: 20070613
  Transmission Date: 20071010
  Serious: No
  Sender: FDA-Public Use
  Company Number: BR-PFIZER INC-2007047140

PATIENT

DRUGS (1)
  1. SUTENT [Suspect]

REACTIONS (1)
  - NO ADVERSE EFFECT [None]
